FAERS Safety Report 14044380 (Version 1)
Quarter: 2017Q4

REPORT INFORMATION
  Report Type: Spontaneous
  Country: US (occurrence: US)
  Receive Date: 20171004
  Receipt Date: 20171004
  Transmission Date: 20180321
  Serious: Yes (Hospitalization, Other)
  Sender: FDA-Public Use
  Company Number: None

PATIENT
  Age: 37 Year
  Sex: Female
  Weight: 63 kg

DRUGS (4)
  1. KLONOPIN [Concomitant]
     Active Substance: CLONAZEPAM
  2. CLONAZEPAM. [Suspect]
     Active Substance: CLONAZEPAM
     Indication: ANXIETY
     Route: 048
     Dates: start: 20150401
  3. CLONAZEPAM. [Suspect]
     Active Substance: CLONAZEPAM
     Indication: INJURY
     Route: 048
     Dates: start: 20150401
  4. SEROQUEL [Concomitant]
     Active Substance: QUETIAPINE FUMARATE

REACTIONS (43)
  - Chest pain [None]
  - Mydriasis [None]
  - Decreased appetite [None]
  - Muscle contractions involuntary [None]
  - Hyperhidrosis [None]
  - Obsessive-compulsive disorder [None]
  - Vision blurred [None]
  - Photophobia [None]
  - Tachycardia [None]
  - Dysgeusia [None]
  - Unevaluable event [None]
  - Hypoacusis [None]
  - Suicidal ideation [None]
  - Dysphoria [None]
  - Illness anxiety disorder [None]
  - Mood swings [None]
  - Hyperaesthesia [None]
  - Visual impairment [None]
  - Anxiety [None]
  - Depersonalisation/derealisation disorder [None]
  - Hypertension [None]
  - Akathisia [None]
  - Dry mouth [None]
  - Amnesia [None]
  - Hallucination [None]
  - Nightmare [None]
  - Tremor [None]
  - Headache [None]
  - Muscle spasms [None]
  - Restless legs syndrome [None]
  - Orthostatic hypotension [None]
  - Tinnitus [None]
  - Withdrawal syndrome [None]
  - Agitation [None]
  - Panic attack [None]
  - Paranoia [None]
  - Depression [None]
  - Derealisation [None]
  - Dizziness [None]
  - Fatigue [None]
  - Gastrointestinal disorder [None]
  - Parosmia [None]
  - Weight decreased [None]

NARRATIVE: CASE EVENT DATE: 20150401
